FAERS Safety Report 6893030-1 (Version None)
Quarter: 2010Q3

REPORT INFORMATION
  Report Type: 
  Country: None (occurrence: None)
  Receive Date: 20100731
  Receipt Date: 20090207
  Transmission Date: 20110219
  Serious: No
  Sender: FDA-Public Use
  Company Number: US-PFIZER INC-2008157730

PATIENT
  Sex: Male

DRUGS (6)
  1. NORVASC [Suspect]
     Dosage: 10 MG, UNK
  2. LIPITOR [Suspect]
     Dosage: 10 MG, UNK
  3. PLAVIX [Suspect]
     Dosage: 75 MG, UNK
  4. MICARDIS [Suspect]
     Dosage: 12.5 MG, UNK
  5. PROBENECID [Suspect]
     Dosage: 500 MG, UNK
  6. NIACIN [Suspect]

REACTIONS (1)
  - PARAESTHESIA [None]
